FAERS Safety Report 13085238 (Version 1)
Quarter: 2017Q1

REPORT INFORMATION
  Report Type: Spontaneous
  Country: US (occurrence: US)
  Receive Date: 20170104
  Receipt Date: 20170104
  Transmission Date: 20170428
  Serious: No
  Sender: FDA-Public Use
  Company Number: US-CORCEPT THERAPEUTICS INC.-US-2016CRT000023

PATIENT
  Sex: Female

DRUGS (2)
  1. KORLYM [Suspect]
     Active Substance: MIFEPRISTONE
     Indication: PRODUCT USED FOR UNKNOWN INDICATION
     Dosage: UNK
     Dates: start: 201510
  2. KORLYM [Suspect]
     Active Substance: MIFEPRISTONE
     Dosage: 900 MG, DAILY

REACTIONS (1)
  - Blood thyroid stimulating hormone increased [Unknown]
